FAERS Safety Report 6342377-6 (Version None)
Quarter: 2009Q3

REPORT INFORMATION
  Report Type: 
  Country: None (occurrence: None)
  Receive Date: 20090908
  Receipt Date: 20070906
  Transmission Date: 20100115
  Serious: Yes (Hospitalization)
  Sender: FDA-Public Use
  Company Number: US-ASTRAZENECA-2006UW05783

PATIENT
  Age: 510 Month
  Sex: Female
  Weight: 122 kg

DRUGS (34)
  1. SEROQUEL [Suspect]
     Indication: DEPRESSION
     Route: 048
     Dates: start: 20001109, end: 20010420
  2. SEROQUEL [Suspect]
     Indication: POST-TRAUMATIC STRESS DISORDER
     Route: 048
     Dates: start: 20001109, end: 20010420
  3. SEROQUEL [Suspect]
     Indication: SCHIZOPHRENIA
     Route: 048
     Dates: start: 20001109, end: 20010420
  4. SEROQUEL [Suspect]
     Dosage: 25-300 MG
     Route: 048
     Dates: start: 20001109
  5. SEROQUEL [Suspect]
     Dosage: 25-300 MG
     Route: 048
     Dates: start: 20001109
  6. SEROQUEL [Suspect]
     Dosage: 25-300 MG
     Route: 048
     Dates: start: 20001109
  7. SEROQUEL [Suspect]
     Route: 048
     Dates: start: 20010401, end: 20010801
  8. SEROQUEL [Suspect]
     Route: 048
     Dates: start: 20010401, end: 20010801
  9. SEROQUEL [Suspect]
     Route: 048
     Dates: start: 20010401, end: 20010801
  10. SEROQUEL [Suspect]
     Route: 048
     Dates: start: 20010801, end: 20031201
  11. SEROQUEL [Suspect]
     Route: 048
     Dates: start: 20010801, end: 20031201
  12. SEROQUEL [Suspect]
     Route: 048
     Dates: start: 20010801, end: 20031201
  13. SEROQUEL [Suspect]
     Route: 048
     Dates: start: 20040101, end: 20050601
  14. SEROQUEL [Suspect]
     Route: 048
     Dates: start: 20040101, end: 20050601
  15. SEROQUEL [Suspect]
     Route: 048
     Dates: start: 20040101, end: 20050601
  16. SEROQUEL [Suspect]
     Route: 048
     Dates: start: 20050801, end: 20060401
  17. SEROQUEL [Suspect]
     Route: 048
     Dates: start: 20050801, end: 20060401
  18. SEROQUEL [Suspect]
     Route: 048
     Dates: start: 20050801, end: 20060401
  19. VASOTEC [Concomitant]
     Indication: HYPERTENSION
  20. LEXAPRO [Concomitant]
  21. PROTONIX [Concomitant]
  22. GEODON [Concomitant]
  23. TRAZODONE [Concomitant]
  24. TRAZODONE [Concomitant]
     Dosage: 50-300 MG
     Dates: start: 19980612
  25. HUMULIN 70/30 [Concomitant]
     Dosage: 70/30, EVERY MORNING 35 U
  26. HUMULIN 70/30 [Concomitant]
     Dosage: 15 U, EVENING
  27. BACTRIM DS [Concomitant]
     Dosage: ONE BID X 5 DAYS
     Dates: start: 20050311
  28. GLYBURIDE [Concomitant]
  29. VISTARIL [Concomitant]
     Dosage: PRN
  30. ABILIFY [Concomitant]
     Dates: start: 20050810, end: 20050811
  31. RISPERDAL [Concomitant]
     Dates: start: 20060401
  32. BUSPAR [Concomitant]
     Dates: start: 19980101
  33. PROZAC [Concomitant]
     Dosage: 10-80 MG
     Dates: start: 19980612
  34. PRILOSEC [Concomitant]
     Dates: start: 20010621

REACTIONS (19)
  - APATHY [None]
  - ASTHENIA [None]
  - BACK PAIN [None]
  - CALCULUS URETERIC [None]
  - DECREASED APPETITE [None]
  - DEPRESSION [None]
  - DIABETES MELLITUS INADEQUATE CONTROL [None]
  - HALLUCINATION, AUDITORY [None]
  - HEART RATE INCREASED [None]
  - INSOMNIA [None]
  - INTENTIONAL OVERDOSE [None]
  - MIGRAINE [None]
  - PANIC ATTACK [None]
  - STRESS [None]
  - SUICIDAL IDEATION [None]
  - SUICIDE ATTEMPT [None]
  - TEARFULNESS [None]
  - TYPE 1 DIABETES MELLITUS [None]
  - TYPE 2 DIABETES MELLITUS [None]
